FAERS Safety Report 8842716 (Version 2)
Quarter: 2012Q4

REPORT INFORMATION
  Report Type: 
  Country: US (occurrence: US)
  Receive Date: 20121016
  Receipt Date: 20121105
  Transmission Date: 20130627
  Serious: No
  Sender: FDA-Public Use
  Company Number: US-ASTRAZENECA-2012SE77588

PATIENT
  Age: 53 Year
  Sex: Female
  Weight: 83.9 kg

DRUGS (5)
  1. NEXIUM [Suspect]
     Indication: GASTROOESOPHAGEAL REFLUX DISEASE
     Route: 048
     Dates: start: 201209, end: 201210
  2. NEXIUM [Suspect]
     Indication: ULCER
     Route: 048
     Dates: start: 201209, end: 201210
  3. VITAMINS [Concomitant]
  4. MULTI VITAMINS [Concomitant]
  5. OMEGA 3 [Concomitant]

REACTIONS (4)
  - Ulcer [Unknown]
  - Pain [Unknown]
  - Off label use [Unknown]
  - Drug dose omission [Unknown]
